FAERS Safety Report 23804493 (Version 1)
Quarter: 2024Q2

REPORT INFORMATION
  Report Type: Spontaneous
  Country: US (occurrence: US)
  Receive Date: 20240501
  Receipt Date: 20240501
  Transmission Date: 20240716
  Serious: Yes (Other)
  Sender: FDA-Public Use
  Company Number: US-BAYER-2024A060613

PATIENT

DRUGS (14)
  1. CIPROFLOXACIN [Suspect]
     Active Substance: CIPROFLOXACIN
  2. PENTASA [Suspect]
     Active Substance: MESALAMINE
  3. ASACOL [Suspect]
     Active Substance: MESALAMINE
  4. XELJANZ [Suspect]
     Active Substance: TOFACITINIB CITRATE
  5. FLAGYL [Suspect]
     Active Substance: METRONIDAZOLE\METRONIDAZOLE HYDROCHLORIDE
  6. METHOTREXATE [Suspect]
     Active Substance: METHOTREXATE
  7. MERCAPTOPURINE [Suspect]
     Active Substance: MERCAPTOPURINE
     Dosage: UNK
  8. STELARA [Suspect]
     Active Substance: USTEKINUMAB
  9. HUMIRA [Suspect]
     Active Substance: ADALIMUMAB
  10. REMICADE [Suspect]
     Active Substance: INFLIXIMAB
  11. CIMZIA [Suspect]
     Active Substance: CERTOLIZUMAB PEGOL
     Dosage: UNK
  12. PREDNISONE [Suspect]
     Active Substance: PREDNISONE
     Dosage: UNK
  13. ENTOCORT [Suspect]
     Active Substance: BUDESONIDE
  14. ENTYVIO [Suspect]
     Active Substance: VEDOLIZUMAB

REACTIONS (11)
  - Anal abscess [None]
  - Pyrexia [None]
  - Night sweats [None]
  - Diarrhoea [None]
  - Fatigue [None]
  - Asthenia [None]
  - Abdominal pain upper [None]
  - Proctalgia [None]
  - Nausea [None]
  - Anal fistula [None]
  - Haemorrhoids [None]
